FAERS Safety Report 4833851-X (Version None)
Quarter: 2005Q4

REPORT INFORMATION
  Report Type: 
  Country: None (occurrence: None)
  Receive Date: 20051118
  Receipt Date: 20051118
  Transmission Date: 20060501
  Serious: Yes (Hospitalization)
  Sender: FDA-Public Use
  Company Number: None

PATIENT
  Sex: Female
  Weight: 53.842 kg

DRUGS (5)
  1. RITUXIMAB [Suspect]
     Indication: DIFFUSE LARGE B-CELL LYMPHOMA
     Dosage: EVERY 14 DAYS   IV
     Route: 042
     Dates: start: 20050819, end: 20051102
  2. CYTOXAN [Suspect]
     Indication: DIFFUSE LARGE B-CELL LYMPHOMA
     Dosage: EVERY 14 DAYS   IV
     Route: 042
     Dates: start: 20050819, end: 20051102
  3. DOXORUBICIN HCL [Suspect]
     Indication: DIFFUSE LARGE B-CELL LYMPHOMA
     Dosage: EVERY 14 DAYS  IV
     Route: 042
     Dates: start: 20050819, end: 20051102
  4. VINCRISTINE [Suspect]
     Indication: DIFFUSE LARGE B-CELL LYMPHOMA
     Dosage: EVERY 14 DAYS   IV
     Route: 042
     Dates: start: 20050819, end: 20051102
  5. PREDNISONE [Suspect]
     Dosage: EVERY 14 DAYS  IV
     Route: 042
     Dates: start: 20050819, end: 20051102

REACTIONS (2)
  - ANAEMIA [None]
  - FEBRILE NEUTROPENIA [None]
